FAERS Safety Report 9199881 (Version 1)
Quarter: 2013Q1

REPORT INFORMATION
  Report Type: Spontaneous
  Country: GB (occurrence: GB)
  Receive Date: 20130329
  Receipt Date: 20130329
  Transmission Date: 20140127
  Serious: Yes (Hospitalization, Other)
  Sender: FDA-Public Use
  Company Number: GB-ELI_LILLY_AND_COMPANY-GB201301007483

PATIENT
  Sex: Female
  Weight: 37.9 kg

DRUGS (6)
  1. FORSTEO [Suspect]
     Indication: OSTEOPOROSIS
     Dosage: 20UG, DAILY
     Route: 058
     Dates: start: 20121105, end: 20121218
  2. FORSTEO [Suspect]
     Dosage: 20 UG, QD
     Route: 058
     Dates: start: 201301
  3. ADCAL D3 [Concomitant]
     Dosage: 2, DF
     Route: 048
  4. LEVOTHYROXINE [Concomitant]
     Dosage: 100UG, DAILY
  5. ORAMORPH [Concomitant]
     Dosage: 5MG, AS NEEDED
  6. ZOMORPH [Concomitant]
     Dosage: 10MG, 2/DAY

REACTIONS (1)
  - Chronic obstructive pulmonary disease [Recovered/Resolved]
